FAERS Safety Report 14958647 (Version 1)
Quarter: 2018Q2

REPORT INFORMATION
  Report Type: Spontaneous
  Country: GB (occurrence: GB)
  Receive Date: 20180531
  Receipt Date: 20180531
  Transmission Date: 20180711
  Serious: Yes (Other)
  Sender: FDA-Public Use
  Company Number: GB-PFIZER INC-2018214240

PATIENT
  Sex: Female

DRUGS (3)
  1. PACLITAXEL. [Suspect]
     Active Substance: PACLITAXEL
     Dosage: 30 MG, UNK
     Route: 042
     Dates: start: 20180226
  2. BACTERIOSTATIC SODIUM CHLORIDE [Suspect]
     Active Substance: SODIUM CHLORIDE
     Dosage: UNK
     Route: 065
     Dates: start: 20180226
  3. PACLITAXEL. [Suspect]
     Active Substance: PACLITAXEL
     Dosage: 150 MG, UNK
     Route: 042
     Dates: start: 20180226

REACTIONS (2)
  - Blood pressure increased [Unknown]
  - Feeling hot [Unknown]
